FAERS Safety Report 7387993-8 (Version None)
Quarter: 2011Q2

REPORT INFORMATION
  Report Type: 
  Country: None (occurrence: None)
  Receive Date: 20110401
  Receipt Date: 20110321
  Transmission Date: 20111010
  Serious: Yes (Life-Threatening)
  Sender: FDA-Public Use
  Company Number: GB-RANBAXY-2011R1-43184

PATIENT
  Age: 54 Year
  Sex: Female

DRUGS (6)
  1. SPRIVIA [Concomitant]
     Indication: CHRONIC OBSTRUCTIVE PULMONARY DISEASE
     Dosage: 18 UG, UNK
     Route: 055
  2. SYMBICORT [Concomitant]
     Indication: CHRONIC OBSTRUCTIVE PULMONARY DISEASE
     Dosage: 2 DF, 2/1 DAYS
     Route: 055
  3. LOPERAMIDE [Concomitant]
     Indication: DIARRHOEA
     Dosage: UNK
     Route: 048
  4. METHADONE [Suspect]
     Indication: PAIN
     Dosage: 50 MG, 2/1 DAYS
     Route: 048
     Dates: start: 20101120
  5. FLUOXETINE [Concomitant]
     Indication: PRODUCT USED FOR UNKNOWN INDICATION
     Dosage: 20 MG, UNK
     Route: 048
  6. FLUCONAZOLE [Suspect]
     Indication: CANDIDIASIS
     Dosage: 50 MG, 1/1 DAYS
     Route: 048
     Dates: start: 20110222, end: 20110225

REACTIONS (2)
  - RESPIRATORY FAILURE [None]
  - RESPIRATORY DEPRESSION [None]
